FAERS Safety Report 9289324 (Version 1)
Quarter: 2013Q2

REPORT INFORMATION
  Report Type: Spontaneous
  Country: US (occurrence: US)
  Receive Date: 20130514
  Receipt Date: 20130514
  Transmission Date: 20140414
  Serious: No
  Sender: FDA-Public Use
  Company Number: US-BAYER-2013-058176

PATIENT
  Age: 45 Year
  Sex: Female
  Weight: 56.69 kg

DRUGS (3)
  1. ALEVE SMOOTH GELS [Suspect]
     Indication: ARTHRITIS
     Dosage: 2 DF, QD
     Route: 048
     Dates: start: 201304, end: 20130501
  2. ALEVE TABLET [Suspect]
     Indication: ARTHRITIS
     Dosage: 2 DF, QD
     Route: 048
     Dates: end: 201304
  3. ALEVE LIQUID GELS [Suspect]
     Indication: ARTHRITIS
     Dosage: 2 DF, QD
     Route: 048

REACTIONS (3)
  - Drug ineffective [None]
  - Nausea [Recovered/Resolved]
  - Abdominal pain upper [Recovered/Resolved]
